FAERS Safety Report 4683689-1 (Version None)
Quarter: 2005Q2

REPORT INFORMATION
  Report Type: 
  Country: None (occurrence: None)
  Receive Date: 20050607
  Receipt Date: 20050602
  Transmission Date: 20051028
  Serious: Yes (Other)
  Sender: FDA-Public Use
  Company Number: 200515080GDDC

PATIENT
  Age: 64 Year
  Sex: Female
  Weight: 90 kg

DRUGS (6)
  1. LASIX [Suspect]
     Route: 048
  2. AMIODARONE HYDROCHLORIDE [Suspect]
     Route: 048
  3. SLOW-K [Suspect]
     Route: 048
  4. LEVOTHYROXINE SODIUM [Suspect]
     Route: 048
  5. ESTIGYN [Suspect]
     Route: 048
  6. PRINIVIL [Suspect]
     Route: 048

REACTIONS (3)
  - ANGIONEUROTIC OEDEMA [None]
  - GLOSSITIS [None]
  - RASH MORBILLIFORM [None]
